FAERS Safety Report 7079893-8 (Version None)
Quarter: 2010Q4

REPORT INFORMATION
  Report Type: 
  Country: None (occurrence: None)
  Receive Date: 20101102
  Receipt Date: 20101026
  Transmission Date: 20110411
  Serious: Yes (Hospitalization, Other)
  Sender: FDA-Public Use
  Company Number: BR-SANOFI-AVENTIS-2010SA065850

PATIENT
  Sex: Male

DRUGS (9)
  1. LANTUS [Suspect]
     Route: 058
     Dates: start: 20060101
  2. OPTIPEN [Suspect]
     Dates: start: 20060101
  3. MICARDIS [Concomitant]
     Indication: HYPERTENSION
     Route: 048
     Dates: start: 20100401
  4. ROSUVASTATIN [Concomitant]
     Route: 048
     Dates: start: 20080101
  5. CARBAMAZEPINE [Concomitant]
     Route: 048
     Dates: start: 20040101
  6. CITALOPRAM HYDROBROMIDE [Concomitant]
     Indication: ANTIDEPRESSANT THERAPY
     Route: 048
     Dates: start: 20100401
  7. BUPROPION HYDROCHLORIDE [Concomitant]
     Indication: ANTIDEPRESSANT THERAPY
     Route: 048
     Dates: start: 20100401
  8. CLOPIDOGREL [Concomitant]
     Route: 048
     Dates: start: 20080101
  9. NOVORAPID [Concomitant]
     Dosage: ACCORDING TO GLYCEMIA
     Route: 058
     Dates: start: 20060101

REACTIONS (7)
  - ASTHENIA [None]
  - CORONARY ARTERY DISEASE [None]
  - DIABETIC RETINOPATHY [None]
  - DRY MOUTH [None]
  - HYPERGLYCAEMIA [None]
  - HYPOGLYCAEMIA [None]
  - VISION BLURRED [None]
